FAERS Safety Report 26117053 (Version 1)
Quarter: 2025Q4

REPORT INFORMATION
  Report Type: Spontaneous
  Country: EU (occurrence: EU)
  Receive Date: 20251203
  Receipt Date: 20251203
  Transmission Date: 20260117
  Serious: Yes (Life-Threatening, Other)
  Sender: ALEXION PHARMACEUTICALS
  Company Number: None

PATIENT
  Age: 69 Year
  Sex: Female
  Weight: 73 kg

DRUGS (2)
  1. CRESTOR [Suspect]
     Active Substance: ROSUVASTATIN CALCIUM
     Indication: Hypercholesterolaemia
     Dosage: 20 MILLIGRAM, 1/DAY
     Route: 065
     Dates: start: 20251015, end: 20251022
  2. FENOFIBRATE [Suspect]
     Active Substance: FENOFIBRATE
     Indication: Blood triglycerides increased
     Dosage: 145 MILLIGRAM, 1/DAY
     Route: 065
     Dates: start: 20251015, end: 20251022

REACTIONS (4)
  - Femoral hernia strangulated [Recovering/Resolving]
  - Blood creatinine abnormal [Recovering/Resolving]
  - Thrombocytopenia [Recovering/Resolving]
  - Product prescribing error [Unknown]

NARRATIVE: CASE EVENT DATE: 20251022
